FAERS Safety Report 20889093 (Version 1)
Quarter: 2022Q2

REPORT INFORMATION
  Report Type: Other
  Country: CA (occurrence: CA)
  Receive Date: 20220530
  Receipt Date: 20220530
  Transmission Date: 20220721
  Serious: Yes (Hospitalization)
  Sender: FDA-Public Use
  Company Number: CA-CELLTRION INC.-2022CA007485

PATIENT

DRUGS (18)
  1. RITUXIMAB [Suspect]
     Active Substance: RITUXIMAB
     Indication: Myositis
     Dosage: 1000.0 MILLIGRAM
     Route: 041
  2. RITUXIMAB [Suspect]
     Active Substance: RITUXIMAB
     Dosage: 500.0 MILLIGRAM
     Route: 041
  3. RITUXIMAB [Suspect]
     Active Substance: RITUXIMAB
     Dosage: 1000.0 MILLIGRAM
     Route: 041
  4. RITUXIMAB [Suspect]
     Active Substance: RITUXIMAB
     Dosage: 1000.0 MILLIGRAM
     Route: 041
  5. RITUXIMAB [Suspect]
     Active Substance: RITUXIMAB
     Dosage: 500.0 MILLIGRAM
     Route: 041
  6. BISOPROLOL [Concomitant]
     Active Substance: BISOPROLOL
  7. DABIGATRAN ETEXILATE MESYLATE [Concomitant]
     Active Substance: DABIGATRAN ETEXILATE MESYLATE
  8. EPINEPHRINE [Concomitant]
     Active Substance: EPINEPHRINE
  9. ETIDRONATE DISODIUM [Concomitant]
     Active Substance: ETIDRONATE DISODIUM
  10. FOLIC ACID [Concomitant]
     Active Substance: FOLIC ACID
  11. HUMALOG [Concomitant]
     Active Substance: INSULIN LISPRO
  12. HYDROCHLOROTHIAZIDE [Concomitant]
     Active Substance: HYDROCHLOROTHIAZIDE
  13. INSULIN NOS [Concomitant]
     Active Substance: INSULIN NOS
     Dosage: DOSE FORM: GLOBULES, ORAL
  14. LIRAGLUTIDE [Concomitant]
     Active Substance: LIRAGLUTIDE
  15. METFORMIN [Concomitant]
     Active Substance: METFORMIN HYDROCHLORIDE
  16. METHOTREXATE [Concomitant]
     Active Substance: METHOTREXATE
     Route: 048
  17. SPIRONOLACTONE [Concomitant]
     Active Substance: SPIRONOLACTONE
  18. PANTOPRAZOLE MAGNESIUM [Concomitant]
     Active Substance: PANTOPRAZOLE MAGNESIUM
     Route: 065

REACTIONS (4)
  - Adverse drug reaction [Unknown]
  - Cardiac disorder [Unknown]
  - Rash [Unknown]
  - Off label use [Unknown]
